FAERS Safety Report 5818320-2 (Version None)
Quarter: 2008Q3

REPORT INFORMATION
  Report Type: 
  Country: None (occurrence: None)
  Receive Date: 20080722
  Receipt Date: 20080716
  Transmission Date: 20090109
  Serious: Yes (Other)
  Sender: FDA-Public Use
  Company Number: US-BAXTER-2008BH007455

PATIENT
  Age: 52 Year
  Sex: Male
  Weight: 61 kg

DRUGS (2)
  1. REGLAN [Suspect]
     Indication: PROPHYLAXIS OF NAUSEA AND VOMITING
     Route: 042
     Dates: start: 20080704, end: 20080706
  2. TPN [Concomitant]
     Indication: MEDICAL DIET

REACTIONS (10)
  - ABDOMINAL PAIN UPPER [None]
  - DYSARTHRIA [None]
  - DYSPHAGIA [None]
  - FACIAL PALSY [None]
  - INCOHERENT [None]
  - INCORRECT DOSE ADMINISTERED [None]
  - MALAISE [None]
  - PNEUMONIA ASPIRATION [None]
  - SWOLLEN TONGUE [None]
  - VOMITING PROJECTILE [None]
